FAERS Safety Report 21387635 (Version 1)
Quarter: 2022Q3

REPORT INFORMATION
  Report Type: Spontaneous
  Country: US (occurrence: US)
  Receive Date: 20220928
  Receipt Date: 20220928
  Transmission Date: 20221027
  Serious: No
  Sender: FDA-Public Use
  Company Number: US-TAKEDA-2022TUS067801

PATIENT

DRUGS (3)
  1. COLCHICINE [Interacting]
     Active Substance: COLCHICINE
     Indication: Gout
     Dosage: UNK
     Route: 065
  2. AMOXICILLIN [Interacting]
     Active Substance: AMOXICILLIN
     Indication: Dental operation
     Dosage: UNK
     Route: 065
  3. AMOXICILLIN [Interacting]
     Active Substance: AMOXICILLIN
     Indication: Tooth disorder

REACTIONS (1)
  - Drug interaction [Unknown]
